FAERS Safety Report 8341680-8 (Version None)
Quarter: 2012Q2

REPORT INFORMATION
  Report Type: 
  Country: None (occurrence: None)
  Receive Date: 20120507
  Receipt Date: 20120504
  Transmission Date: 20120825
  Serious: No
  Sender: FDA-Public Use
  Company Number: US-PFIZER INC-2012110203

PATIENT
  Sex: Male
  Weight: 71.655 kg

DRUGS (3)
  1. LYRICA [Suspect]
     Indication: PAIN
     Dosage: 75 MG, 1X/DAY
     Route: 048
     Dates: start: 20110101, end: 20120501
  2. RESTORIL [Concomitant]
     Dosage: 30 MG, 1X/DAY
  3. METHADONE [Concomitant]
     Dosage: 10 MG, 9X/DAY

REACTIONS (4)
  - HYPERHIDROSIS [None]
  - PAIN [None]
  - RESTLESSNESS [None]
  - CHILLS [None]
